FAERS Safety Report 9878197 (Version 2)
Quarter: 2014Q1

REPORT INFORMATION
  Report Type: Spontaneous
  Country: US (occurrence: US)
  Receive Date: 20140206
  Receipt Date: 20140325
  Transmission Date: 20141002
  Serious: Yes (Hospitalization)
  Sender: FDA-Public Use
  Company Number: US-BAYER-2014-018573

PATIENT
  Age: 35 Year
  Sex: Female

DRUGS (9)
  1. YAZ [Suspect]
  2. YASMIN [Suspect]
  3. FLEXERIL [Concomitant]
     Indication: PAIN
  4. KLONOPIN [Concomitant]
     Indication: ANXIETY
  5. ADVIL [Concomitant]
     Indication: PAIN
  6. XANAX [Concomitant]
  7. PERCOCET [Concomitant]
  8. CHANTIX [Concomitant]
  9. MORPHINE [Concomitant]

REACTIONS (3)
  - Pulmonary embolism [Recovered/Resolved]
  - Injury [Recovered/Resolved]
  - Emotional distress [None]
